FAERS Safety Report 17197160 (Version 2)
Quarter: 2020Q1

REPORT INFORMATION
  Report Type: Spontaneous
  Country: JP (occurrence: JP)
  Receive Date: 20191224
  Receipt Date: 20200123
  Transmission Date: 20200409
  Serious: Yes (Hospitalization, Other)
  Sender: FDA-Public Use
  Company Number: NVSJ2019JP005423

PATIENT
  Age: 69 Year
  Sex: Female

DRUGS (14)
  1. PREDNISOLONE. [Concomitant]
     Active Substance: PREDNISOLONE
     Dosage: 40 MG
     Route: 065
  2. PREDNISOLONE. [Concomitant]
     Active Substance: PREDNISOLONE
     Dosage: 35 MG
     Route: 065
  3. PREDNISOLONE. [Concomitant]
     Active Substance: PREDNISOLONE
     Dosage: 2.5 MG/DAY PREDNISOLONE WAS REDUCED EVERY WEEK
     Route: 065
  4. HYDROXYCHLOROQUINE SULFATE. [Concomitant]
     Active Substance: HYDROXYCHLOROQUINE SULFATE
     Dosage: 200 MG
     Route: 065
  5. SULBACTAM [Concomitant]
     Active Substance: SULBACTAM
     Indication: PANCYTOPENIA
     Dosage: 1.5 G
     Route: 065
  6. NEORAL [Suspect]
     Active Substance: CYCLOSPORINE
     Indication: CHOLECYSTITIS ACUTE
     Dosage: 100 MG
     Route: 048
     Dates: start: 201806, end: 201806
  7. HYDROCORTICONE [Concomitant]
     Active Substance: HYDROCORTISONE
     Indication: MALAISE
     Dosage: 100 MG
     Route: 042
  8. CEFOPERAZONE [Concomitant]
     Active Substance: CEFOPERAZONE
     Indication: PANCYTOPENIA
     Dosage: 1.5 G
     Route: 065
  9. HYDROCORTICONE [Concomitant]
     Active Substance: HYDROCORTISONE
     Dosage: 100 MG
     Route: 041
  10. PREDNISOLONE. [Concomitant]
     Active Substance: PREDNISOLONE
     Indication: RHEUMATOID ARTHRITIS
     Dosage: 2 MG
     Route: 065
  11. PREDNISOLONE. [Concomitant]
     Active Substance: PREDNISOLONE
     Dosage: 50 MG
     Route: 065
  12. PREDNISOLONE. [Concomitant]
     Active Substance: PREDNISOLONE
     Dosage: 20 MG
     Route: 065
  13. PREDNISOLONE. [Concomitant]
     Active Substance: PREDNISOLONE
     Dosage: 30 MG
     Route: 065
  14. HYDROXYCHLOROQUINE SULFATE. [Concomitant]
     Active Substance: HYDROXYCHLOROQUINE SULFATE
     Indication: PRODUCT USED FOR UNKNOWN INDICATION
     Dosage: 200 MG
     Route: 065

REACTIONS (2)
  - Product use in unapproved indication [Unknown]
  - Septic shock [Recovered/Resolved]

NARRATIVE: CASE EVENT DATE: 201806
